FAERS Safety Report 4391757-7 (Version None)
Quarter: 2004Q3

REPORT INFORMATION
  Report Type: 
  Country: None (occurrence: None)
  Receive Date: 20040702
  Receipt Date: 20040428
  Transmission Date: 20050211
  Serious: Yes (Other)
  Sender: FDA-Public Use
  Company Number: 2004UW08719

PATIENT
  Age: 41 Year
  Sex: Male

DRUGS (2)
  1. CRESTOR [Suspect]
     Dates: end: 20040402
  2. UNSPECIFIED MULTIPLE MEDICATIONS [Concomitant]

REACTIONS (1)
  - MEMORY IMPAIRMENT [None]
